FAERS Safety Report 7523177-8 (Version None)
Quarter: 2011Q2

REPORT INFORMATION
  Report Type: 
  Country: None (occurrence: None)
  Receive Date: 20110603
  Receipt Date: 20110519
  Transmission Date: 20111010
  Serious: Yes (Hospitalization)
  Sender: FDA-Public Use
  Company Number: US-UCBSA-033524

PATIENT
  Sex: Female
  Weight: 90 kg

DRUGS (5)
  1. CIMZIA [Suspect]
     Indication: CROHN'S DISEASE
     Route: 058
     Dates: start: 20101101
  2. DEXILANT [Concomitant]
     Indication: CROHN'S DISEASE
     Route: 048
  3. ESGIC [Concomitant]
     Route: 048
  4. METHADONE HCL [Concomitant]
     Route: 048
  5. DILAUDID [Concomitant]

REACTIONS (8)
  - HYPOAESTHESIA [None]
  - SKIN EXFOLIATION [None]
  - NASAL DRYNESS [None]
  - MUCOSAL INFLAMMATION [None]
  - PRURITUS [None]
  - PARAESTHESIA [None]
  - HOSPITALISATION [None]
  - SKIN BURNING SENSATION [None]
